FAERS Safety Report 18709225 (Version 14)
Quarter: 2023Q2

REPORT INFORMATION
  Report Type: Spontaneous
  Country: CA (occurrence: CA)
  Receive Date: 20210106
  Receipt Date: 20230518
  Transmission Date: 20230721
  Serious: Yes (Life-Threatening, Hospitalization, Other)
  Sender: FDA-Public Use
  Company Number: CA-DSJP-DSU-2021-100223

PATIENT
  Age: 86 Year
  Sex: Male
  Weight: 152 kg

DRUGS (84)
  1. OLMESARTAN MEDOXOMIL [Suspect]
     Active Substance: OLMESARTAN MEDOXOMIL
     Indication: Hypertension
     Dosage: 40 MG, QD (1 EVERY 1 DAYS)
     Route: 048
  2. OLMESARTAN MEDOXOMIL [Suspect]
     Active Substance: OLMESARTAN MEDOXOMIL
     Dosage: 40 MG, QD (1 EVERY 1 DAYS)
     Route: 048
  3. OLMESARTAN MEDOXOMIL [Suspect]
     Active Substance: OLMESARTAN MEDOXOMIL
     Dosage: 40 MG, (1 EVERY 1 DAYS) QD
     Route: 048
  4. OLMESARTAN MEDOXOMIL [Suspect]
     Active Substance: OLMESARTAN MEDOXOMIL
     Dosage: 40 MG, QD (1 EVERY 1 DAYS)
     Route: 048
  5. ALLOPURINOL [Suspect]
     Active Substance: ALLOPURINOL
     Indication: Product used for unknown indication
     Dosage: 200 MG, QD (1 EVERY 1 DAYS)
     Route: 048
  6. ALLOPURINOL [Suspect]
     Active Substance: ALLOPURINOL
     Indication: Gout
  7. APIXABAN [Suspect]
     Active Substance: APIXABAN
     Indication: Product used for unknown indication
     Dosage: 5 MG, BID
     Route: 048
  8. APIXABAN [Suspect]
     Active Substance: APIXABAN
     Dosage: 5 MG,  (2 EVERY 1 DAYS)
     Route: 048
  9. APIXABAN [Suspect]
     Active Substance: APIXABAN
     Dosage: 5 MG, ONCE EVERY 12HR
     Route: 048
  10. APIXABAN [Suspect]
     Active Substance: APIXABAN
     Dosage: 5 MG
     Route: 048
  11. APIXABAN [Suspect]
     Active Substance: APIXABAN
     Dosage: 5 MG,  (2 EVERY 1 DAYS)
     Route: 048
  12. APIXABAN [Suspect]
     Active Substance: APIXABAN
     Dosage: 5 MG,  (1 EVERY 5 DAYS)
     Route: 048
  13. BREO ELLIPTA [Suspect]
     Active Substance: FLUTICASONE FUROATE\VILANTEROL TRIFENATATE
     Indication: Product used for unknown indication
     Dosage: 1 DF, QD (1 EVERY 1 DAYS)
  14. BREO ELLIPTA [Suspect]
     Active Substance: FLUTICASONE FUROATE\VILANTEROL TRIFENATATE
     Dosage: 1 DF, QD (1 EVERY 1 DAYS)
  15. CHOLECALCIFEROL [Suspect]
     Active Substance: CHOLECALCIFEROL
     Indication: Product used for unknown indication
     Dosage: 1000 IU (1DF), QD
     Route: 048
  16. CHOLECALCIFEROL [Suspect]
     Active Substance: CHOLECALCIFEROL
     Indication: Osteoporosis
     Dosage: UNK UNK, QD (1 EVERY 1 DAYS)
     Route: 048
  17. CHOLECALCIFEROL [Suspect]
     Active Substance: CHOLECALCIFEROL
     Dosage: UNK UNK, QD (1 EVERY 1 DAYS)
     Route: 048
  18. CHOLECALCIFEROL [Suspect]
     Active Substance: CHOLECALCIFEROL
     Dosage: 1 DF
     Route: 048
  19. CHOLECALCIFEROL [Suspect]
     Active Substance: CHOLECALCIFEROL
     Dosage: 1 DF, (1 EVERY 1 DAYS) QD
     Route: 048
  20. FUROSEMIDE [Suspect]
     Active Substance: FUROSEMIDE
     Indication: Product used for unknown indication
     Dosage: 80 MG, QD (1 EVERY 1 DAYS)
     Route: 048
  21. FUROSEMIDE [Suspect]
     Active Substance: FUROSEMIDE
     Dosage: 80 MG, QD (1 EVERY 1 DAYS)
     Route: 048
  22. GABAPENTIN [Suspect]
     Active Substance: GABAPENTIN
     Indication: Product used for unknown indication
     Dosage: 300 MG, QD, 1 EVERY 1 DAYS
     Route: 048
  23. PANTOPRAZOLE [Suspect]
     Active Substance: PANTOPRAZOLE
     Indication: Product used for unknown indication
     Dosage: 40 MG, QD, 1 EVERY 1 DAYS
     Route: 048
  24. PREDNISONE [Suspect]
     Active Substance: PREDNISONE
     Indication: Product used for unknown indication
     Dosage: 15 MG, QD, 1 EVERY 1 DAYS
     Route: 065
  25. ALBUTEROL [Suspect]
     Active Substance: ALBUTEROL
     Indication: Product used for unknown indication
     Dosage: 1 DF, (1 EVERY 1 DAYS) QD
     Route: 065
  26. ALBUTEROL [Suspect]
     Active Substance: ALBUTEROL
     Dosage: (1 EVERY 1 DAYS) QD
     Route: 065
  27. ALBUTEROL [Suspect]
     Active Substance: ALBUTEROL
     Dosage: UNK
     Route: 065
  28. TAMSULOSIN HYDROCHLORIDE [Suspect]
     Active Substance: TAMSULOSIN HYDROCHLORIDE
     Indication: Product used for unknown indication
     Dosage: 0.4 MG, QD
     Route: 048
  29. TAMSULOSIN HYDROCHLORIDE [Suspect]
     Active Substance: TAMSULOSIN HYDROCHLORIDE
     Dosage: UNK MG, QD
     Route: 048
  30. THEOPHYLLINE [Suspect]
     Active Substance: THEOPHYLLINE
     Indication: Asthma
     Dosage: 100 MG, BID, ONCE EVERY 12HR
     Route: 048
  31. THEOPHYLLINE [Suspect]
     Active Substance: THEOPHYLLINE
     Dosage: 100 MG, BID, 1 EVERY 12HR
     Route: 048
  32. THEOPHYLLINE [Suspect]
     Active Substance: THEOPHYLLINE
     Dosage: 100 MG
     Route: 048
  33. THEOPHYLLINE [Suspect]
     Active Substance: THEOPHYLLINE
     Dosage: 100 MG, 2 EVERY 1 DAY
     Route: 048
  34. THEOPHYLLINE [Suspect]
     Active Substance: THEOPHYLLINE
     Dosage: 100 MG, 2 EVERY 1 DAY
     Route: 048
  35. THEOPHYLLINE [Suspect]
     Active Substance: THEOPHYLLINE
     Dosage: 100 MG, 1 EVERY 5  DAY (Q5D) (DOSAGE FORM: NOT SPECIFIED)
     Route: 048
  36. UMECLIDINIUM BROMIDE [Suspect]
     Active Substance: UMECLIDINIUM BROMIDE
     Indication: Product used for unknown indication
     Dosage: 1 DF, QD
  37. UMECLIDINIUM BROMIDE [Suspect]
     Active Substance: UMECLIDINIUM BROMIDE
     Dosage: 1 DF, QD
     Route: 065
  38. ASPIRIN [Suspect]
     Active Substance: ASPIRIN
     Indication: Product used for unknown indication
     Dosage: 1 DF, QD
     Route: 048
  39. ASPIRIN [Suspect]
     Active Substance: ASPIRIN
     Dosage: 1 DF, QD (1 EVERY 1 DAYS)
     Route: 048
  40. ASPIRIN [Suspect]
     Active Substance: ASPIRIN
     Dosage: 1000 INTERNATIONAL UNIT, (1 EVERY 1 DAYS)
     Route: 048
  41. ASPIRIN [Suspect]
     Active Substance: ASPIRIN
     Dosage: UNK
     Route: 048
  42. ASPIRIN [Suspect]
     Active Substance: ASPIRIN
     Dosage: 1 DF, 1 EVERY 1 DAY (QD)
     Route: 065
  43. ASPIRIN [Suspect]
     Active Substance: ASPIRIN
     Dosage: UNK UNK, QD
     Route: 048
  44. TIOTROPIUM BROMIDE MONOHYDRATE [Suspect]
     Active Substance: TIOTROPIUM BROMIDE MONOHYDRATE
     Indication: Product used for unknown indication
     Dosage: 1 DF, QD
     Route: 065
  45. MONTELUKAST SODIUM [Suspect]
     Active Substance: MONTELUKAST SODIUM
     Indication: Asthma
     Dosage: 1 DF, QD, 1 EVERY 1 DAYS
     Route: 065
  46. FORMOTEROL FUMARATE\MOMETASONE FUROATE [Suspect]
     Active Substance: FORMOTEROL FUMARATE\MOMETASONE FUROATE
     Indication: Product used for unknown indication
     Dosage: UNK
     Route: 065
  47. FORMOTEROL FUMARATE\MOMETASONE FUROATE [Suspect]
     Active Substance: FORMOTEROL FUMARATE\MOMETASONE FUROATE
     Dosage: UNK
     Route: 065
  48. FINASTERIDE [Suspect]
     Active Substance: FINASTERIDE
     Indication: Product used for unknown indication
     Dosage: 5 MG, (1 EVERY 1 DAYS) QD
     Route: 048
  49. FINASTERIDE [Suspect]
     Active Substance: FINASTERIDE
     Dosage: 0.5 MG, (1 EVERY 1 DAYS) QD
     Route: 048
  50. BISOPROLOL [Suspect]
     Active Substance: BISOPROLOL
     Indication: Hypertension
     Dosage: 2.5 MG, QD (1 EVERY 1 DAYS)
     Route: 048
  51. BISOPROLOL [Suspect]
     Active Substance: BISOPROLOL
     Dosage: UNK  (1 EVERY 1 DAYS)
     Route: 048
  52. BISOPROLOL [Suspect]
     Active Substance: BISOPROLOL
     Dosage: 2.5 MG, QD (1 EVERY 1 DAYS)
     Route: 048
  53. ALENDRONATE SODIUM [Suspect]
     Active Substance: ALENDRONATE SODIUM
     Indication: Product used for unknown indication
     Dosage: 1 DF, QD, 1 EVERY 1 DAYS
     Route: 048
  54. ALENDRONATE SODIUM\CHOLECALCIFEROL [Suspect]
     Active Substance: ALENDRONATE SODIUM\CHOLECALCIFEROL
     Indication: Product used for unknown indication
     Dosage: 1 DF, QD,  1 EVERY 1 DAYS
     Route: 048
  55. SPIRIVA [Suspect]
     Active Substance: TIOTROPIUM BROMIDE MONOHYDRATE
     Indication: Product used for unknown indication
     Dosage: 1 DF, QD, 1 EVERY 1 DAYS
     Route: 065
  56. SPIRIVA [Suspect]
     Active Substance: TIOTROPIUM BROMIDE MONOHYDRATE
     Dosage: 1 EVERY 1 DAYS
     Route: 065
  57. SPIRIVA [Suspect]
     Active Substance: TIOTROPIUM BROMIDE MONOHYDRATE
     Dosage: UNK
     Route: 065
  58. VITAMIN D3 [Suspect]
     Active Substance: CHOLECALCIFEROL
     Indication: Osteoporosis
     Dosage: 1 DF, QD (1000 IU)
     Route: 048
  59. VITAMIN D3 [Suspect]
     Active Substance: CHOLECALCIFEROL
     Dosage: 1 DF, (1 EVERY 1 DAYS) QD
     Route: 048
  60. VITAMIN D3 [Suspect]
     Active Substance: CHOLECALCIFEROL
     Dosage: UNK
     Route: 048
  61. VITAMIN D3 [Suspect]
     Active Substance: CHOLECALCIFEROL
     Dosage: 1 DF, QD (1000 IU) (1 EVERY 1 DAYS)
     Route: 048
  62. ZENHALE [Suspect]
     Active Substance: FORMOTEROL FUMARATE\MOMETASONE FUROATE
     Indication: Product used for unknown indication
     Dosage: UNK
     Route: 065
  63. ZENHALE [Suspect]
     Active Substance: FORMOTEROL FUMARATE\MOMETASONE FUROATE
     Dosage: UNK
     Route: 065
  64. ZENHALE [Suspect]
     Active Substance: FORMOTEROL FUMARATE\MOMETASONE FUROATE
     Dosage: UNK, AEROSOL, METERED DOSE
     Route: 065
  65. ZENHALE [Suspect]
     Active Substance: FORMOTEROL FUMARATE\MOMETASONE FUROATE
     Dosage: UNK, AEROSOL, METERED DOSE
     Route: 065
  66. ELIQUIS [Suspect]
     Active Substance: APIXABAN
     Indication: Product used for unknown indication
     Dosage: 5 MG, BID
     Route: 048
  67. ELIQUIS [Suspect]
     Active Substance: APIXABAN
     Dosage: 5 MG, 2 EVERY 1 DAYS
     Route: 048
  68. ELIQUIS [Suspect]
     Active Substance: APIXABAN
     Dosage: 5 MG, EVERY 12 HOURS
     Route: 048
  69. ELIQUIS [Suspect]
     Active Substance: APIXABAN
     Dosage: 5 MG
     Route: 048
  70. ELIQUIS [Suspect]
     Active Substance: APIXABAN
     Dosage: 5 MG, 2 EVERY 1 DAYS
     Route: 048
  71. ELIQUIS [Suspect]
     Active Substance: APIXABAN
     Dosage: 5 MG, 1 EVERY 5 DAY (Q5D)
     Route: 048
  72. BISOPROLOL FUMARATE [Suspect]
     Active Substance: BISOPROLOL FUMARATE
     Indication: Hypertension
     Dosage: 2.5 MG, QD
     Route: 048
  73. BISOPROLOL FUMARATE [Suspect]
     Active Substance: BISOPROLOL FUMARATE
     Dosage: UNK UNK, QD
     Route: 048
  74. BISOPROLOL FUMARATE [Suspect]
     Active Substance: BISOPROLOL FUMARATE
     Dosage: 2.5 MG, QD
     Route: 048
  75. DULERA [Suspect]
     Active Substance: FORMOTEROL FUMARATE DIHYDRATE\MOMETASONE FUROATE
     Indication: Product used for unknown indication
     Dosage: UNK
  76. PROPECIA [Suspect]
     Active Substance: FINASTERIDE
     Indication: Product used for unknown indication
     Dosage: 5 MG, (1 EVERY 1 DAY),  QD
     Route: 048
  77. PROPECIA [Suspect]
     Active Substance: FINASTERIDE
     Dosage: 0.5 MG, (1 EVERY 1 DAYS)  QD
     Route: 048
  78. PROPECIA [Suspect]
     Active Substance: FINASTERIDE
     Dosage: 5 MG, (1 EVERY 1 DAY),  QD
     Route: 048
  79. PROPECIA [Suspect]
     Active Substance: FINASTERIDE
     Dosage: 0.5 MG, (1 EVERY 1 DAYS)  QD
     Route: 048
  80. FOSAMAX [Suspect]
     Active Substance: ALENDRONATE SODIUM
     Indication: Product used for unknown indication
     Dosage: 1 DF, QD, 1 EVERY 1 DAYS
     Route: 048
  81. FOSAVANCE [Suspect]
     Active Substance: ALENDRONATE SODIUM\CHOLECALCIFEROL
     Indication: Product used for unknown indication
     Dosage: 1 DOSAGE FORM, 1 EVERY 1 DAYS
     Route: 048
  82. ZENHALE [Concomitant]
     Active Substance: FORMOTEROL FUMARATE\MOMETASONE FUROATE
     Indication: Product used for unknown indication
     Route: 065
  83. DULERA [Concomitant]
     Active Substance: FORMOTEROL FUMARATE DIHYDRATE\MOMETASONE FUROATE
     Indication: Product used for unknown indication
     Route: 065
  84. TIOTROPIUM BROMIDE MONOHYDRATE [Concomitant]
     Active Substance: TIOTROPIUM BROMIDE MONOHYDRATE
     Indication: Product used for unknown indication
     Dosage: UNK
     Route: 065

REACTIONS (35)
  - Anxiety [Unknown]
  - Aortic valve stenosis [Unknown]
  - Asthma [Unknown]
  - Atrial fibrillation [Unknown]
  - Benign prostatic hyperplasia [Unknown]
  - Bronchial secretion retention [Unknown]
  - Bronchial wall thickening [Unknown]
  - Bronchiectasis [Unknown]
  - Cardiac failure congestive [Unknown]
  - Chest X-ray abnormal [Unknown]
  - Cough [Unknown]
  - Depression [Unknown]
  - Diastolic dysfunction [Unknown]
  - Dizziness [Unknown]
  - Dyspnoea [Unknown]
  - Fatigue [Unknown]
  - Full blood count abnormal [Unknown]
  - Gastrooesophageal reflux disease [Unknown]
  - Gout [Unknown]
  - Hypertension [Unknown]
  - Hypoacusis [Unknown]
  - Intervertebral disc degeneration [Unknown]
  - Loss of personal independence in daily activities [Unknown]
  - Obstruction [Unknown]
  - Obstructive airways disorder [Unknown]
  - Osteoporosis [Unknown]
  - Pain in extremity [Unknown]
  - Productive cough [Unknown]
  - Pulmonary function test abnormal [Unknown]
  - Right atrial hypertrophy [Unknown]
  - Right ventricular hypertrophy [Unknown]
  - Sleep apnoea syndrome [Unknown]
  - Therapeutic product effect incomplete [Unknown]
  - Wheezing [Unknown]
  - Adverse event [Unknown]
